FAERS Safety Report 11229152 (Version 2)
Quarter: 2015Q4

REPORT INFORMATION
  Report Type: Spontaneous
  Country: US (occurrence: US)
  Receive Date: 20150630
  Receipt Date: 20151025
  Transmission Date: 20160304
  Serious: Yes (Hospitalization, Other)
  Sender: FDA-Public Use
  Company Number: US-ELI_LILLY_AND_COMPANY-US201506009900

PATIENT
  Age: 52 Year
  Sex: Male
  Weight: 54.42 kg

DRUGS (28)
  1. ANDRODERM [Suspect]
     Active Substance: TESTOSTERONE
     Dosage: UNK, UNKNOWN
     Route: 065
     Dates: start: 20120530
  2. TESTOSTERONE CYPIONATE. [Suspect]
     Active Substance: TESTOSTERONE CYPIONATE
     Dosage: 200 MG, MONTHLY (1/M)
     Route: 065
     Dates: start: 20140623
  3. TESTOSTERONE CYPIONATE. [Suspect]
     Active Substance: TESTOSTERONE CYPIONATE
     Dosage: 200 MG, MONTHLY (1/M)
     Route: 065
     Dates: start: 20141117
  4. ARMOUR THYROID [Concomitant]
     Active Substance: THYROID, PORCINE\THYROID, UNSPECIFIED
     Dosage: UNK, UNKNOWN
     Route: 065
  5. ANDROGEL [Suspect]
     Active Substance: TESTOSTERONE
     Dosage: UNK UNK, QD
     Route: 065
     Dates: start: 20120822, end: 20121209
  6. TESTOPEL [Suspect]
     Active Substance: TESTOSTERONE
     Dosage: 750 MG, UNKNOWN
     Route: 050
     Dates: start: 20120202
  7. AXIRON [Suspect]
     Active Substance: TESTOSTERONE
     Indication: BLOOD TESTOSTERONE DECREASED
     Dosage: 60 MG, QD
     Route: 065
     Dates: start: 20120525, end: 20120807
  8. AXIRON [Suspect]
     Active Substance: TESTOSTERONE
     Dosage: 60 MG, QD
     Route: 065
     Dates: start: 20121126
  9. AXIRON [Suspect]
     Active Substance: TESTOSTERONE
     Dosage: 60 MG, QD
     Route: 065
     Dates: start: 20130201
  10. ANDRODERM [Suspect]
     Active Substance: TESTOSTERONE
     Indication: BLOOD TESTOSTERONE DECREASED
     Dosage: UNK, UNKNOWN
     Route: 065
     Dates: start: 20120526
  11. TESTOPEL [Suspect]
     Active Substance: TESTOSTERONE
     Indication: BLOOD TESTOSTERONE DECREASED
     Dosage: UNK, UNKNOWN
     Route: 065
     Dates: start: 2008
  12. TESTIM [Suspect]
     Active Substance: TESTOSTERONE
     Indication: BLOOD TESTOSTERONE DECREASED
     Dosage: 1 %, QD
     Route: 065
     Dates: start: 20081216, end: 20091221
  13. TESTIM [Suspect]
     Active Substance: TESTOSTERONE
     Dosage: 1 %, QD
     Route: 065
     Dates: start: 20100310
  14. ANDRODERM [Suspect]
     Active Substance: TESTOSTERONE
     Dosage: UNK, UNKNOWN
     Route: 065
     Dates: start: 20120605
  15. TESTOSTERONE CYPIONATE. [Suspect]
     Active Substance: TESTOSTERONE CYPIONATE
     Dosage: UNK UNK, MONTHLY (1/M)
     Route: 065
     Dates: start: 20140821
  16. TESTOPEL [Suspect]
     Active Substance: TESTOSTERONE
     Dosage: 900 MG, UNKNOWN
     Route: 050
     Dates: start: 20130827
  17. TESTOPEL [Suspect]
     Active Substance: TESTOSTERONE
     Dosage: 750 MG, UNKNOWN
     Route: 050
     Dates: start: 20140123
  18. TESTIM [Suspect]
     Active Substance: TESTOSTERONE
     Dosage: 1 %, QD
     Route: 065
     Dates: start: 20100125, end: 20100729
  19. TESTOPEL [Suspect]
     Active Substance: TESTOSTERONE
     Dosage: UNK, UNKNOWN
     Route: 065
     Dates: start: 2008
  20. KLONOPIN [Concomitant]
     Active Substance: CLONAZEPAM
     Dosage: 2 MG, TID
     Route: 065
  21. TESTIM [Suspect]
     Active Substance: TESTOSTERONE
     Dosage: 1 %, QD
     Route: 065
     Dates: start: 20100830, end: 20101123
  22. TESTOPEL [Suspect]
     Active Substance: TESTOSTERONE
     Dosage: 900 MG, UNKNOWN
     Route: 050
     Dates: start: 20140624
  23. TESTOSTERONE CYPIONATE. [Suspect]
     Active Substance: TESTOSTERONE CYPIONATE
     Indication: BLOOD TESTOSTERONE DECREASED
     Dosage: UNK UNK, MONTHLY (1/M)
     Route: 065
     Dates: start: 20080418, end: 20081004
  24. TESTOPEL [Suspect]
     Active Substance: TESTOSTERONE
     Dosage: 900 MG, UNKNOWN
     Route: 050
     Dates: start: 20140905
  25. TESTOPEL [Suspect]
     Active Substance: TESTOSTERONE
     Dosage: 900 MG, UNKNOWN
     Route: 050
     Dates: start: 20141201
  26. AXIRON [Suspect]
     Active Substance: TESTOSTERONE
     Dosage: 60 MG, QD
     Route: 065
     Dates: start: 20121206
  27. ANDROGEL [Suspect]
     Active Substance: TESTOSTERONE
     Indication: BLOOD TESTOSTERONE DECREASED
     Dosage: 1.62 %, QD
     Route: 065
     Dates: start: 20120711, end: 20130610
  28. TESTOPEL [Suspect]
     Active Substance: TESTOSTERONE
     Dosage: 750 MG, UNKNOWN
     Route: 050
     Dates: start: 20130308

REACTIONS (5)
  - Cerebrovascular accident [Unknown]
  - Aneurysm [Unknown]
  - Cerebrovascular accident [Unknown]
  - Memory impairment [Not Recovered/Not Resolved]
  - Fatigue [Not Recovered/Not Resolved]

NARRATIVE: CASE EVENT DATE: 20121021
